FAERS Safety Report 14502174 (Version 2)
Quarter: 2018Q2

REPORT INFORMATION
  Report Type: Spontaneous
  Country: US (occurrence: US)
  Receive Date: 20180208
  Receipt Date: 20180601
  Transmission Date: 20180711
  Serious: Yes (Other)
  Sender: FDA-Public Use
  Company Number: US-ASTRAZENECA-2018SE15675

PATIENT
  Age: 18275 Day
  Sex: Female
  Weight: 70.3 kg

DRUGS (39)
  1. NEXIUM [Suspect]
     Active Substance: ESOMEPRAZOLE MAGNESIUM
     Indication: GASTRIC ULCER
     Route: 048
     Dates: start: 2000, end: 2015
  2. NEXIUM [Suspect]
     Active Substance: ESOMEPRAZOLE MAGNESIUM
     Indication: GASTROOESOPHAGEAL REFLUX DISEASE
     Route: 048
     Dates: start: 1997, end: 2015
  3. DEXILANT [Suspect]
     Active Substance: DEXLANSOPRAZOLE
     Dosage: GENERIC
     Route: 065
  4. ZEGERID [Suspect]
     Active Substance: OMEPRAZOLE\SODIUM BICARBONATE
     Dosage: GENERIC
     Route: 065
  5. DIAZEPAM. [Concomitant]
     Active Substance: DIAZEPAM
     Route: 048
     Dates: start: 20120222
  6. FENTANYL CITRATE. [Concomitant]
     Active Substance: FENTANYL CITRATE
     Dosage: 800.0UG UNKNOWN
     Dates: start: 20110204
  7. CIPROFLOXACIN. [Concomitant]
     Active Substance: CIPROFLOXACIN
  8. NYSTATIN. [Concomitant]
     Active Substance: NYSTATIN
  9. FLEXRIL [Concomitant]
     Indication: HYPOTONIA
     Dates: start: 1995, end: 2009
  10. LUNESTA [Concomitant]
     Active Substance: ESZOPICLONE
  11. OXYCONTIN [Concomitant]
     Active Substance: OXYCODONE HYDROCHLORIDE
  12. MATRIN [Concomitant]
     Indication: PAIN
     Dates: start: 1995, end: 2001
  13. ASPIRIN. [Concomitant]
     Active Substance: ASPIRIN
     Indication: PAIN
  14. RANITIDINE. [Concomitant]
     Active Substance: RANITIDINE
  15. METHADONE HYDROCHLORIDE. [Concomitant]
     Active Substance: METHADONE HYDROCHLORIDE
  16. GEODON [Concomitant]
     Active Substance: ZIPRASIDONE HYDROCHLORIDE\ZIPRASIDONE MESYLATE
  17. NEXIUM [Suspect]
     Active Substance: ESOMEPRAZOLE MAGNESIUM
     Indication: GASTRIC ULCER
     Dosage: 40.0MG UNKNOWN
     Route: 048
     Dates: start: 20071121
  18. LOMETIL [Concomitant]
     Indication: DIARRHOEA
     Dates: start: 1995, end: 2009
  19. NEXIUM [Suspect]
     Active Substance: ESOMEPRAZOLE MAGNESIUM
     Indication: GASTRIC ULCER
     Route: 048
     Dates: start: 1997, end: 2015
  20. DICYCLOMINE HCL [Concomitant]
     Active Substance: DICYCLOMINE HYDROCHLORIDE
     Route: 048
     Dates: start: 20110610
  21. PROMETHAZINE [Concomitant]
     Active Substance: PROMETHAZINE\PROMETHAZINE HYDROCHLORIDE
  22. FUROSEMIDE. [Concomitant]
     Active Substance: FUROSEMIDE
  23. ROZEREM [Concomitant]
     Active Substance: RAMELTEON
  24. POTASSIUM CHLORIDE. [Concomitant]
     Active Substance: POTASSIUM CHLORIDE
  25. CIPROFLOXACIN HYDROCHLORIDE. [Concomitant]
     Active Substance: CIPROFLOXACIN HYDROCHLORIDE
  26. NEXIUM [Suspect]
     Active Substance: ESOMEPRAZOLE MAGNESIUM
     Indication: GASTROOESOPHAGEAL REFLUX DISEASE
     Route: 048
     Dates: start: 2000, end: 2015
  27. NEXIUM [Suspect]
     Active Substance: ESOMEPRAZOLE MAGNESIUM
     Indication: GASTROOESOPHAGEAL REFLUX DISEASE
     Dosage: 40.0MG UNKNOWN
     Route: 048
     Dates: start: 20071121
  28. PRILOSEC [Suspect]
     Active Substance: OMEPRAZOLE MAGNESIUM
     Dosage: GENERIC40.0MG UNKNOWN
     Route: 048
  29. PREVACID [Suspect]
     Active Substance: LANSOPRAZOLE
     Dosage: 30.0MG UNKNOWN
     Route: 048
  30. NEXIUM [Suspect]
     Active Substance: ESOMEPRAZOLE MAGNESIUM
     Indication: GASTRIC ULCER
     Route: 048
     Dates: start: 2013, end: 2015
  31. PROTONIX [Suspect]
     Active Substance: PANTOPRAZOLE SODIUM
     Dosage: GENERIC40.0MG UNKNOWN
     Route: 048
     Dates: start: 20090825
  32. ACTIQ [Concomitant]
     Active Substance: FENTANYL CITRATE
  33. NEXIUM [Suspect]
     Active Substance: ESOMEPRAZOLE MAGNESIUM
     Indication: GASTROOESOPHAGEAL REFLUX DISEASE
     Route: 048
     Dates: start: 2013, end: 2015
  34. PREVACID [Suspect]
     Active Substance: LANSOPRAZOLE
     Dosage: GENERIC
     Route: 065
  35. IBUPROFEN. [Concomitant]
     Active Substance: IBUPROFEN
     Indication: PAIN
  36. ACETAMINOPHEN. [Concomitant]
     Active Substance: ACETAMINOPHEN
     Indication: PAIN
  37. TEMAZEPAM. [Concomitant]
     Active Substance: TEMAZEPAM
  38. NIRAVAM [Concomitant]
     Active Substance: ALPRAZOLAM
  39. LEVOTHYROXINE SODIUM. [Concomitant]
     Active Substance: LEVOTHYROXINE SODIUM

REACTIONS (23)
  - Myocardial infarction [Unknown]
  - Renal artery stenosis [Unknown]
  - Pharyngitis [Unknown]
  - Tubulointerstitial nephritis and uveitis syndrome [Unknown]
  - Acute kidney injury [Unknown]
  - Sepsis [Unknown]
  - Kidney infection [Unknown]
  - Nephrocalcinosis [Unknown]
  - Cerebrovascular accident [Unknown]
  - Hypocalcaemia [Unknown]
  - Urinary tract infection [Unknown]
  - Renal failure [Unknown]
  - Hypercalcaemia [Unknown]
  - Infection [Unknown]
  - Obesity [Unknown]
  - Staphylococcal infection [Unknown]
  - Toxoplasmosis [Unknown]
  - Thrombotic thrombocytopenic purpura [Unknown]
  - Urethral stenosis [Unknown]
  - Chronic kidney disease [Unknown]
  - Congenital cystic kidney disease [Unknown]
  - Thrombotic microangiopathy [Unknown]
  - Constipation [Unknown]

NARRATIVE: CASE EVENT DATE: 20030918
